FAERS Safety Report 5378350-4 (Version None)
Quarter: 2007Q2

REPORT INFORMATION
  Report Type: 
  Country: None (occurrence: None)
  Receive Date: 20070530
  Receipt Date: 20070219
  Transmission Date: 20071010
  Serious: No
  Sender: FDA-Public Use
  Company Number: 2007PV030318

PATIENT
  Age: 49 Year
  Sex: Male

DRUGS (4)
  1. BYETTA [Suspect]
     Indication: DIABETES MELLITUS
     Dosage: 5 MCG;BID;SC
     Route: 058
     Dates: start: 20070218
  2. NOVOLOG [Concomitant]
  3. LANTUS [Concomitant]
  4. .. [Concomitant]

REACTIONS (1)
  - BLOOD GLUCOSE INCREASED [None]
